FAERS Safety Report 5046387-0 (Version None)
Quarter: 2006Q3

REPORT INFORMATION
  Report Type: 
  Country: None (occurrence: None)
  Receive Date: 20060706
  Receipt Date: 20060706
  Transmission Date: 20061208
  Serious: Yes (Other)
  Sender: FDA-Public Use
  Company Number: None

PATIENT
  Age: 56 Year
  Sex: Female
  Weight: 108.8633 kg

DRUGS (1)
  1. EMSAM [Suspect]
     Indication: DEPRESSION
     Dosage: 1 PATCH DAILTY TRANSDERMAL
     Route: 062
     Dates: start: 20060509, end: 20060614

REACTIONS (5)
  - BLEPHARITIS [None]
  - DRY EYE [None]
  - EYE PAIN [None]
  - INSOMNIA [None]
  - THERAPY NON-RESPONDER [None]
